FAERS Safety Report 17630057 (Version 1)
Quarter: 2020Q2

REPORT INFORMATION
  Report Type: Spontaneous
  Country: US (occurrence: US)
  Receive Date: 20200403
  Receipt Date: 20200403
  Transmission Date: 20200713
  Serious: Yes (Disabling)
  Sender: FDA-Public Use
  Company Number: None

PATIENT
  Age: 18 Year
  Sex: Female
  Weight: 63 kg

DRUGS (8)
  1. OXYCODONE [Concomitant]
     Active Substance: OXYCODONE
  2. BIRTH CONTROL [Concomitant]
     Active Substance: UNSPECIFIED INGREDIENT
  3. NEURONTIN [Suspect]
     Active Substance: GABAPENTIN
     Indication: MENINGOMYELOCELE
     Dosage: ?          QUANTITY:2 TABLET(S);OTHER FREQUENCY:.5 IN THE MORNING;?
     Route: 048
  4. ROBAXIN [Concomitant]
     Active Substance: METHOCARBAMOL
  5. NAPROXEN. [Concomitant]
     Active Substance: NAPROXEN
  6. VALIUM [Concomitant]
     Active Substance: DIAZEPAM
  7. BIOTIN GUMMIES [Concomitant]
  8. PROBIOTIC [Concomitant]
     Active Substance: PROBIOTICS NOS

REACTIONS (2)
  - Memory impairment [None]
  - Condition aggravated [None]

NARRATIVE: CASE EVENT DATE: 20170101
